FAERS Safety Report 9293947 (Version 1)
Quarter: 2013Q1

REPORT INFORMATION
  Report Type: Spontaneous
  Country: US (occurrence: None)
  Receive Date: 20121221
  Receipt Date: 20121221
  Transmission Date: 20140127
  Serious: Yes (Other)
  Sender: FDA-Public Use
  Company Number: PHEH2012US002947

PATIENT
  Age: 8 Year
  Sex: Male
  Weight: 24.49 kg

DRUGS (2)
  1. FOCALIN XR [Suspect]
     Indication: ATTENTION DEFICIT/HYPERACTIVITY DISORDER
     Route: 048
     Dates: start: 20110405
  2. PULMICORT TURBUHALER (BUDESONIDE) INHALER [Concomitant]

REACTIONS (5)
  - Abdominal pain upper [None]
  - Gastrooesophageal reflux disease [None]
  - Nausea [None]
  - Syncope [None]
  - Dizziness [None]
